FAERS Safety Report 5195395-8 (Version None)
Quarter: 2006Q4

REPORT INFORMATION
  Report Type: 
  Country: None (occurrence: None)
  Receive Date: 20061229
  Receipt Date: 20061221
  Transmission Date: 20070319
  Serious: Yes (Hospitalization)
  Sender: FDA-Public Use
  Company Number: CH-PFIZER INC-2006155665

PATIENT
  Age: 71 Year
  Sex: Male

DRUGS (3)
  1. ALDACTONE [Suspect]
     Dosage: TEXT:UNKNOWN
  2. HEPARIN SODIUM INJECTION [Suspect]
  3. FUROSEMIDE [Suspect]
     Route: 042

REACTIONS (1)
  - ACUTE CORONARY SYNDROME [None]
